FAERS Safety Report 8225346 (Version 2)
Quarter: 2015Q1

REPORT INFORMATION
  Report Type: Spontaneous
  Country: US (occurrence: US)
  Receive Date: 20111103
  Receipt Date: 20150114
  Transmission Date: 20150721
  Serious: Yes (Hospitalization, Other)
  Sender: FDA-Public Use
  Company Number: US-AMGEN-USASP2011056387

PATIENT
  Age: 80 Year
  Sex: Female

DRUGS (1)
  1. ENBREL [Suspect]
     Active Substance: ETANERCEPT
     Indication: RHEUMATOID ARTHRITIS
     Dosage: 25 MG, 2 TIMES/WK
     Route: 065
     Dates: start: 20000223

REACTIONS (11)
  - Throat irritation [Unknown]
  - Injection site pain [Unknown]
  - Pneumonia [Recovered/Resolved]
  - Chest discomfort [Unknown]
  - Cough [Unknown]
  - Pain [Recovered/Resolved]
  - Laryngitis [Unknown]
  - Pneumonia aspiration [Recovered/Resolved]
  - Pain in extremity [Recovered/Resolved]
  - Pleurisy [Not Recovered/Not Resolved]
  - Skin injury [Unknown]

NARRATIVE: CASE EVENT DATE: 201105
